FAERS Safety Report 24976549 (Version 1)
Quarter: 2025Q1

REPORT INFORMATION
  Report Type: Spontaneous
  Country: CN (occurrence: CN)
  Receive Date: 20250217
  Receipt Date: 20250217
  Transmission Date: 20250409
  Serious: Yes (Other)
  Sender: Haleon PLC
  Company Number: CN-HALEON-2228365

PATIENT
  Age: 55 Year
  Sex: Female
  Weight: 65 kg

DRUGS (1)
  1. IBUPROFEN [Suspect]
     Active Substance: IBUPROFEN
     Indication: Pain in extremity
     Route: 048
     Dates: start: 20250130, end: 20250213

REACTIONS (8)
  - Erythema [Recovering/Resolving]
  - Rash maculo-papular [Recovering/Resolving]
  - Papule [Recovering/Resolving]
  - Pruritus [Recovering/Resolving]
  - Drug eruption [Recovering/Resolving]
  - Dermatitis allergic [Recovering/Resolving]
  - Blister [Recovering/Resolving]
  - Fixed eruption [Recovering/Resolving]

NARRATIVE: CASE EVENT DATE: 20250130
